FAERS Safety Report 13384734 (Version 1)
Quarter: 2017Q1

REPORT INFORMATION
  Report Type: Spontaneous
  Country: US (occurrence: US)
  Receive Date: 20170329
  Receipt Date: 20170329
  Transmission Date: 20170429
  Serious: No
  Sender: FDA-Public Use
  Company Number: None

PATIENT
  Age: 36 Year
  Sex: Female
  Weight: 151 kg

DRUGS (1)
  1. DIPHENHYDRAMINE 50 MG/ML [Suspect]
     Active Substance: DIPHENHYDRAMINE
     Indication: MAST CELL ACTIVATION SYNDROME
     Route: 042
     Dates: start: 20160401, end: 20170329

REACTIONS (1)
  - Pyrexia [None]

NARRATIVE: CASE EVENT DATE: 20170329
